FAERS Safety Report 5504857-2 (Version None)
Quarter: 2007Q4

REPORT INFORMATION
  Report Type: 
  Country: None (occurrence: None)
  Receive Date: 20071102
  Receipt Date: 20071024
  Transmission Date: 20080405
  Serious: Yes (Hospitalization)
  Sender: FDA-Public Use
  Company Number: PHHO2007CA16418

PATIENT
  Age: 61 Year
  Sex: Male
  Weight: 93 kg

DRUGS (11)
  1. MYFORTIC [Suspect]
     Indication: RENAL TRANSPLANT
     Dosage: 1080 MG DAILY
     Route: 048
     Dates: start: 20070628, end: 20070929
  2. BACTRIM DS [Concomitant]
  3. PROGRAF [Suspect]
     Indication: RENAL TRANSPLANT
     Dosage: 1 MG, BID
     Route: 048
     Dates: start: 20070929
  4. PREDNISONE [Suspect]
     Indication: RENAL TRANSPLANT
     Dosage: 10 MG, QD
     Route: 048
     Dates: start: 20070929
  5. LASIX [Concomitant]
  6. HUMULIN 70/30 [Concomitant]
  7. HUMULIN N [Concomitant]
  8. ATENOLOL [Concomitant]
  9. NITROSTAT [Concomitant]
  10. ASPIRIN [Concomitant]
  11. LOSARTAN POTASSIUM [Concomitant]

REACTIONS (7)
  - ATRIAL FIBRILLATION [None]
  - CARDIAC FAILURE CONGESTIVE [None]
  - DISEASE PROGRESSION [None]
  - INFECTED SKIN ULCER [None]
  - PERIPHERAL VASCULAR DISORDER [None]
  - STAPHYLOCOCCAL SEPSIS [None]
  - TROPONIN INCREASED [None]
